FAERS Safety Report 11736915 (Version 2)
Quarter: 2015Q4

REPORT INFORMATION
  Report Type: Spontaneous
  Country: PL (occurrence: PL)
  Receive Date: 20151113
  Receipt Date: 20151221
  Transmission Date: 20160304
  Serious: Yes (Death, Hospitalization, Other)
  Sender: FDA-Public Use
  Company Number: PL-TEVA-607038ISR

PATIENT
  Age: 67 Year
  Sex: Female

DRUGS (7)
  1. MYKOFENOLANU MOFETYLU [Concomitant]
  2. FOLINIC ACID [Suspect]
     Active Substance: LEUCOVORIN
     Route: 065
  3. FLUOROURACIL. [Suspect]
     Active Substance: FLUOROURACIL
     Route: 065
  4. IRINOTECAN [Suspect]
     Active Substance: IRINOTECAN
     Route: 065
  5. METHYLPREDNISOLONE. [Concomitant]
     Active Substance: METHYLPREDNISOLONE
  6. OXALIPLATIN. [Suspect]
     Active Substance: OXALIPLATIN
     Route: 065
  7. TACROLIMUS. [Suspect]
     Active Substance: TACROLIMUS
     Route: 065

REACTIONS (5)
  - Metastases to liver [Unknown]
  - Renal transplant failure [Unknown]
  - Metastases to peritoneum [Unknown]
  - Adenocarcinoma of colon [Unknown]
  - Death [Fatal]

NARRATIVE: CASE EVENT DATE: 201306
